FAERS Safety Report 8874463 (Version 3)
Quarter: 2012Q4

REPORT INFORMATION
  Report Type: 
  Country: US (occurrence: US)
  Receive Date: 20121030
  Receipt Date: 20121212
  Transmission Date: 20130627
  Serious: No
  Sender: FDA-Public Use
  Company Number: US-PFIZER INC-2012264476

PATIENT
  Age: 53 Year
  Sex: Female
  Weight: 54.42 kg

DRUGS (2)
  1. CLINDAMYCIN PHOSPHATE [Suspect]
     Indication: ACNE
     Dosage: UNK
     Route: 061
  2. CLINDAMYCIN PHOSPHATE [Suspect]
     Dosage: UNK

REACTIONS (2)
  - Drug dispensing error [Unknown]
  - Dry skin [Unknown]
